FAERS Safety Report 14656701 (Version 2)
Quarter: 2018Q2

REPORT INFORMATION
  Report Type: Spontaneous
  Country: US (occurrence: US)
  Receive Date: 20180319
  Receipt Date: 20180524
  Transmission Date: 20180711
  Serious: No
  Sender: FDA-Public Use
  Company Number: US-BRISTOL-MYERS SQUIBB COMPANY-BMS-2018-022430

PATIENT
  Sex: Female

DRUGS (1)
  1. NULOJIX [Suspect]
     Active Substance: BELATACEPT
     Indication: RENAL TRANSPLANT
     Dosage: 525 MG, Q4WK
     Route: 065

REACTIONS (12)
  - Paranasal sinus haemorrhage [Unknown]
  - Ear congestion [Unknown]
  - Fatigue [Unknown]
  - Tinnitus [Unknown]
  - Hyperhidrosis [Unknown]
  - Agitation [Unknown]
  - Palpitations [Unknown]
  - Blood pressure inadequately controlled [Unknown]
  - Balance disorder [Unknown]
  - Arthralgia [Unknown]
  - Pain in extremity [Unknown]
  - Confusional state [Unknown]
